FAERS Safety Report 5186251-X (Version None)
Quarter: 2006Q4

REPORT INFORMATION
  Report Type: 
  Country: None (occurrence: None)
  Receive Date: 20061211
  Receipt Date: 20061127
  Transmission Date: 20070319
  Serious: Yes (Hospitalization)
  Sender: FDA-Public Use
  Company Number: 200610906

PATIENT
  Age: 64 Year
  Sex: Male

DRUGS (1)
  1. ANTI-D (RHO) IMMUNOGLOBULIN (ANTI-D IMMUNOGLOBULIN) [Suspect]

REACTIONS (5)
  - BACTERIAL INFECTION [None]
  - INJECTION SITE INFECTION [None]
  - INJECTION SITE INFLAMMATION [None]
  - INJECTION SITE SWELLING [None]
  - WRONG TECHNIQUE IN DRUG USAGE PROCESS [None]
